FAERS Safety Report 9421267 (Version 2)
Quarter: 2014Q1

REPORT INFORMATION
  Report Type: Spontaneous
  Country: US (occurrence: US)
  Receive Date: 20130725
  Receipt Date: 20140103
  Transmission Date: 20141002
  Serious: Yes (Hospitalization)
  Sender: FDA-Public Use
  Company Number: US-B.I. PHARMACEUTICALS,INC./RIDGEFIELD-2013-BI-21830BP

PATIENT
  Sex: Female
  Weight: 68.04 kg

DRUGS (9)
  1. PRADAXA [Suspect]
     Indication: ANTICOAGULANT THERAPY
     Dosage: 300 MG
     Dates: start: 20110811, end: 20121220
  2. PRADAXA [Suspect]
     Indication: ATRIAL FIBRILLATION
  3. LOPRESSOR [Concomitant]
     Indication: HYPERTENSION
     Dosage: 50 MG
  4. SYNTHROID [Concomitant]
     Indication: HYPOTHYROIDISM
     Dosage: 125 MCG
  5. LOSARTAN [Concomitant]
     Indication: HYPERTENSION
     Dosage: 50 MG
  6. ALLOPURINOL [Concomitant]
     Dosage: 100 MG
  7. FLUOCINONIDE [Concomitant]
  8. ADVAIR [Concomitant]
     Indication: CHRONIC OBSTRUCTIVE PULMONARY DISEASE
     Dosage: 2 PUF
  9. SPIRIVA [Concomitant]
     Dosage: 18 MCG

REACTIONS (2)
  - Gastrointestinal haemorrhage [Recovered/Resolved]
  - Haemorrhagic anaemia [Recovered/Resolved]
